FAERS Safety Report 23362939 (Version 1)
Quarter: 2024Q1

REPORT INFORMATION
  Report Type: Spontaneous
  Country: US (occurrence: None)
  Receive Date: 20240103
  Receipt Date: 20240103
  Transmission Date: 20240410
  Serious: Yes (Hospitalization)
  Sender: FDA-Public Use
  Company Number: None

PATIENT
  Age: 8 Year
  Sex: Female

DRUGS (18)
  1. PULMOZYME [Suspect]
     Active Substance: DORNASE ALFA
     Indication: Cystic fibrosis
     Route: 055
     Dates: start: 20160618
  2. AMOX/K CLAV TAB 875-125 [Concomitant]
  3. AZITHROMYCIN TAB 250MG [Concomitant]
  4. CEPHALEXIN SUS 250/5ML [Concomitant]
  5. COMPLETE CHW MLTI-VI [Concomitant]
  6. COMPLETE FORM D5000 SOFTGEL [Concomitant]
  7. CREON CAP 12000UNT [Concomitant]
  8. CULTURELLE CAP [Concomitant]
  9. MAGNESIUM TAB 30MG [Concomitant]
  10. OMEPRAZOLE CAP 20MG [Concomitant]
  11. PEPPERMINT CAP 50MG [Concomitant]
  12. PROAIR HFA AER [Concomitant]
  13. REGLAN TAB 5MG [Concomitant]
  14. SOD CHL 7% 4ML 4=1 NEB [Concomitant]
  15. SYMBICORT 80-4.5 MCG INHALER [Concomitant]
  16. VENTOLIN HFA INHALER [Concomitant]
  17. ZENPEP 5,000 CAP [Concomitant]
  18. ZENPEP 15,000U CAP [Concomitant]

REACTIONS (1)
  - Cystic fibrosis [None]

NARRATIVE: CASE EVENT DATE: 20231212
